APPROVED DRUG PRODUCT: ELOCON
Active Ingredient: MOMETASONE FUROATE
Strength: 0.1% **Federal Register determination that product was not discontinued or withdrawn for safety or effectiveness reasons**
Dosage Form/Route: CREAM;TOPICAL
Application: N019625 | Product #001
Applicant: ORGANON LLC A SUB OF ORGANON AND CO
Approved: May 6, 1987 | RLD: No | RS: No | Type: DISCN